FAERS Safety Report 8801471 (Version 2)
Quarter: 2012Q4

REPORT INFORMATION
  Report Type: 
  Country: US (occurrence: US)
  Receive Date: 20120921
  Receipt Date: 20121205
  Transmission Date: 20130627
  Serious: Yes (Death)
  Sender: FDA-Public Use
  Company Number: US-ROCHE-1126291

PATIENT
  Age: 49 Year
  Sex: Female

DRUGS (3)
  1. AVASTIN [Suspect]
     Indication: PANCREATIC CARCINOMA
     Route: 042
     Dates: start: 20060706, end: 20061107
  2. CISPLATIN [Concomitant]
     Route: 065
  3. GEMZAR [Concomitant]
     Route: 065

REACTIONS (1)
  - Disease progression [Fatal]
